FAERS Safety Report 10057866 (Version 1)
Quarter: 2014Q1

REPORT INFORMATION
  Report Type: Spontaneous
  Country: US (occurrence: None)
  Receive Date: 20140327
  Receipt Date: 20140327
  Transmission Date: 20141002
  Serious: Yes (Death)
  Sender: FDA-Public Use
  Company Number: 003-167

PATIENT
  Age: 23 Month
  Sex: Female

DRUGS (1)
  1. CROFAB ( BTG INTERNATIONAL, INC) [Suspect]
     Indication: SNAKE BITE
     Dosage: 6 VIALS UNKNOWN

REACTIONS (5)
  - Hypotension [None]
  - Petechiae [None]
  - Pancreatitis haemorrhagic [None]
  - Gastritis [None]
  - Haemorrhagic diathesis [None]
